FAERS Safety Report 12038516 (Version 1)
Quarter: 2016Q1

REPORT INFORMATION
  Report Type: Spontaneous
  Country: US (occurrence: None)
  Receive Date: 20160205
  Receipt Date: 20160205
  Transmission Date: 20160526
  Serious: Yes (Other)
  Sender: FDA-Public Use
  Company Number: None

PATIENT
  Sex: Male

DRUGS (1)
  1. GLEEVEC [Suspect]
     Active Substance: IMATINIB MESYLATE
     Indication: MYELODYSPLASTIC SYNDROME
     Dosage: 100MG//200MG  ALTERNATE QOD  PO
     Route: 048
     Dates: start: 20150814

REACTIONS (1)
  - Blood urine present [None]
